FAERS Safety Report 9760339 (Version 1)
Quarter: 2013Q4

REPORT INFORMATION
  Report Type: Spontaneous
  Country: US (occurrence: US)
  Receive Date: 20131216
  Receipt Date: 20131216
  Transmission Date: 20140711
  Serious: No
  Sender: FDA-Public Use
  Company Number: US-GILEAD-2010-0029256

PATIENT
  Sex: Female
  Weight: 150.59 kg

DRUGS (14)
  1. LETAIRIS [Suspect]
     Indication: PULMONARY ARTERIAL HYPERTENSION
     Route: 048
     Dates: start: 20100302, end: 20100514
  2. DARVOCET-N [Concomitant]
  3. DILTIAZEM [Concomitant]
  4. LASIX [Concomitant]
  5. TYLENOL ARTHRITIS [Concomitant]
  6. ALBUTEROL [Concomitant]
  7. SYNTHROID [Concomitant]
  8. COUMADIN [Concomitant]
  9. METFORMIN HCL [Concomitant]
  10. GABAPENTIN [Concomitant]
  11. ADVAIR [Concomitant]
  12. LEVOTHYROXINE [Concomitant]
  13. POTASSIUM CHLORIDE [Concomitant]
  14. AMITRIPTYLINE [Concomitant]

REACTIONS (1)
  - Hypersensitivity [Unknown]
